FAERS Safety Report 24027401 (Version 1)
Quarter: 2024Q2

REPORT INFORMATION
  Report Type: Spontaneous
  Country: US (occurrence: US)
  Receive Date: 20240628
  Receipt Date: 20240628
  Transmission Date: 20240716
  Serious: Yes (Hospitalization, Other)
  Sender: FDA-Public Use
  Company Number: US-BRISTOL-MYERS SQUIBB COMPANY-2024-103457

PATIENT
  Age: 73 Year
  Sex: Male
  Weight: 88.45 kg

DRUGS (1)
  1. REVLIMID [Suspect]
     Active Substance: LENALIDOMIDE
     Indication: Plasma cell myeloma
     Dosage: FREQUENCY: 2W ON 1W OFF
     Route: 048
     Dates: start: 20240201

REACTIONS (2)
  - Gastrointestinal disorder [Unknown]
  - Off label use [Unknown]
